FAERS Safety Report 8045435-3 (Version None)
Quarter: 2012Q1

REPORT INFORMATION
  Report Type: 
  Country: None (occurrence: None)
  Receive Date: 20120113
  Receipt Date: 20120101
  Transmission Date: 20120608
  Serious: Yes (Hospitalization)
  Sender: FDA-Public Use
  Company Number: SE-CELGENEUS-150-21880-10032681

PATIENT
  Sex: Female
  Weight: 63.8 kg

DRUGS (12)
  1. PREDNISOLONE [Concomitant]
     Indication: PROPHYLAXIS
     Dosage: 10 MILLIGRAM
     Route: 065
     Dates: start: 20100324, end: 20100329
  2. FILGRASTIM [Concomitant]
     Dosage: .1286 MILLIGRAM
     Route: 058
     Dates: start: 20100324
  3. NEUPOGEN [Concomitant]
     Dosage: 300 MICROGRAM
     Route: 065
  4. IMMUNE GLOBULIN INTRAVENOUS (HUMAN) [Concomitant]
     Dosage: .0333 GRAM
     Route: 041
     Dates: start: 20091102
  5. ALLOPURINOL [Concomitant]
     Indication: PROPHYLAXIS
     Dosage: 300 MILLIGRAM
     Route: 065
     Dates: start: 20100321
  6. OMEPRAZOLE [Concomitant]
     Indication: PROPHYLAXIS
     Dosage: 20 MILLIGRAM
     Route: 065
     Dates: start: 20100329
  7. REVLIMID [Suspect]
     Dosage: 5 MILLIGRAM
     Route: 048
     Dates: start: 20100420
  8. MORPHINE [Concomitant]
     Indication: PAIN
     Dosage: 5 MILLIGRAM
     Route: 041
     Dates: start: 20100329
  9. DEXTROPROPOXIFEN [Concomitant]
     Indication: PAIN
     Dosage: 100 MILLIGRAM
     Route: 065
     Dates: start: 20100327
  10. REVLIMID [Suspect]
     Indication: CHRONIC LYMPHOCYTIC LEUKAEMIA REFRACTORY
     Dosage: 5 MILLIGRAM
     Route: 048
     Dates: start: 20100324
  11. REVLIMID [Suspect]
     Dosage: 2.5 MILLIGRAM
     Route: 048
     Dates: start: 20100329
  12. PREDNISOLONE [Concomitant]
     Dosage: 100 MILLIGRAM
     Route: 065
     Dates: start: 20100329

REACTIONS (1)
  - TUMOUR FLARE [None]
